FAERS Safety Report 5047713-9 (Version None)
Quarter: 2006Q2

REPORT INFORMATION
  Report Type: 
  Country: None (occurrence: None)
  Receive Date: 20060601
  Receipt Date: 20060207
  Transmission Date: 20061013
  Serious: No
  Sender: FDA-Public Use
  Company Number: US200602001589

PATIENT
  Age: 38 Year
  Sex: Female

DRUGS (1)
  1. CYMBALTA [Suspect]
     Dosage: 30 MG, ORAL
     Route: 048
     Dates: start: 20060101

REACTIONS (3)
  - HEADACHE [None]
  - VISION BLURRED [None]
  - VISUAL ACUITY REDUCED [None]
